FAERS Safety Report 4321956-1 (Version None)
Quarter: 2004Q1

REPORT INFORMATION
  Report Type: 
  Country: None (occurrence: None)
  Receive Date: 20040319
  Receipt Date: 20040310
  Transmission Date: 20041129
  Serious: Yes (Death)
  Sender: FDA-Public Use
  Company Number: US-JNJFOC-20040302559

PATIENT
  Age: 67 Year
  Sex: Male

DRUGS (1)
  1. DURAGESIC [Suspect]
     Indication: CANCER PAIN
     Dosage: TRANSDERMAL
     Route: 062
     Dates: end: 20040305

REACTIONS (2)
  - MALIGNANT NEOPLASM PROGRESSION [None]
  - PROSTATE CANCER METASTATIC [None]
